FAERS Safety Report 4289017-8 (Version None)
Quarter: 2004Q1

REPORT INFORMATION
  Report Type: 
  Country: None (occurrence: None)
  Receive Date: 20040126
  Receipt Date: 20030923
  Transmission Date: 20041129
  Serious: No
  Sender: FDA-Public Use
  Company Number: USA021225049

PATIENT
  Age: 70 Year
  Sex: Female
  Weight: 59 kg

DRUGS (9)
  1. FORTEO [Suspect]
     Indication: OSTEOPOROSIS
     Dosage: 20 UG/DAY
     Dates: start: 20021217
  2. CALCIUM [Concomitant]
  3. LEMBROL [Concomitant]
  4. LANOXIN [Concomitant]
  5. LOPRESSOR [Concomitant]
  6. METHOTREXATE [Concomitant]
  7. PREDNISONE [Concomitant]
  8. MULTI-VITAMIN [Concomitant]
  9. XANAX [Concomitant]

REACTIONS (9)
  - ANXIETY [None]
  - ASTHENIA [None]
  - BLOOD PRESSURE INCREASED [None]
  - DIZZINESS [None]
  - HEADACHE [None]
  - MYALGIA [None]
  - NEOPLASM [None]
  - PAIN [None]
  - PALPITATIONS [None]
